FAERS Safety Report 5275447-4 (Version None)
Quarter: 2007Q1

REPORT INFORMATION
  Report Type: 
  Country: None (occurrence: None)
  Receive Date: 20070326
  Receipt Date: 20070312
  Transmission Date: 20070707
  Serious: Yes (Hospitalization)
  Sender: FDA-Public Use
  Company Number: US-ROCHE-467567

PATIENT
  Age: 16 Year
  Sex: Male

DRUGS (1)
  1. ACCUTANE [Suspect]
     Route: 048
     Dates: start: 19991119, end: 20000417

REACTIONS (10)
  - ANAEMIA [None]
  - ANXIETY [None]
  - COLITIS [None]
  - COLITIS ULCERATIVE [None]
  - DEPRESSION [None]
  - DERMATOMYOSITIS [None]
  - ENTERITIS [None]
  - INFLAMMATORY BOWEL DISEASE [None]
  - IRRITABLE BOWEL SYNDROME [None]
  - PANCREATITIS [None]
